FAERS Safety Report 12379085 (Version 2)
Quarter: 2016Q3

REPORT INFORMATION
  Report Type: Spontaneous
  Country: US (occurrence: US)
  Receive Date: 20160517
  Receipt Date: 20160901
  Transmission Date: 20161109
  Serious: No
  Sender: FDA-Public Use
  Company Number: US-RELYPSA-RLY2016000309

PATIENT
  Age: 90 Year
  Sex: Male

DRUGS (5)
  1. NEPHRO-VITE RX [Concomitant]
  2. BICALUTAMIDE. [Concomitant]
     Active Substance: BICALUTAMIDE
  3. VELTASSA [Suspect]
     Active Substance: PATIROMER
     Indication: HYPERKALAEMIA
     Dosage: 8.4 G, QD
     Route: 048
     Dates: start: 20160323
  4. ARANESP [Concomitant]
     Active Substance: DARBEPOETIN ALFA
  5. CLOPIDOGREL BISULFATE. [Concomitant]
     Active Substance: CLOPIDOGREL BISULFATE

REACTIONS (1)
  - Diarrhoea [Unknown]

NARRATIVE: CASE EVENT DATE: 201603
